FAERS Safety Report 16742115 (Version 2)
Quarter: 2019Q3

REPORT INFORMATION
  Report Type: Spontaneous
  Country: GB (occurrence: GB)
  Receive Date: 20190826
  Receipt Date: 20190828
  Transmission Date: 20191005
  Serious: Yes (Life-Threatening, Hospitalization)
  Sender: FDA-Public Use
  Company Number: GB-JNJFOC-20190822991

PATIENT
  Age: 79 Year
  Sex: Male
  Weight: 135 kg

DRUGS (11)
  1. GLICLAZIDE [Concomitant]
     Active Substance: GLICLAZIDE
  2. LACIDIPINE [Concomitant]
     Active Substance: LACIDIPINE
  3. INVOKANA [Suspect]
     Active Substance: CANAGLIFLOZIN
     Indication: TYPE 2 DIABETES MELLITUS
     Route: 048
     Dates: start: 20180601, end: 20190717
  4. INVOKANA [Suspect]
     Active Substance: CANAGLIFLOZIN
     Dosage: 100 MG TITRATED UP-ONTO 300 MG
     Route: 048
     Dates: start: 20151226
  5. PERINDOPRIL [Concomitant]
     Active Substance: PERINDOPRIL
     Route: 065
  6. CODEINE [Concomitant]
     Active Substance: CODEINE
  7. ATENOLOL. [Concomitant]
     Active Substance: ATENOLOL
  8. DOXAZOSIN [Concomitant]
     Active Substance: DOXAZOSIN MESYLATE
  9. PARACETAMOL [Concomitant]
     Active Substance: ACETAMINOPHEN
  10. TRAMADOL. [Concomitant]
     Active Substance: TRAMADOL
  11. METFORMIN [Concomitant]
     Active Substance: METFORMIN HYDROCHLORIDE

REACTIONS (4)
  - Necrotising fasciitis [Unknown]
  - Diabetes mellitus inadequate control [Unknown]
  - Lower respiratory tract infection [Unknown]
  - Fournier^s gangrene [Recovering/Resolving]

NARRATIVE: CASE EVENT DATE: 20190715
